FAERS Safety Report 6382762-X (Version None)
Quarter: 2009Q3

REPORT INFORMATION
  Report Type: 
  Country: None (occurrence: None)
  Receive Date: 20090930
  Receipt Date: 20090921
  Transmission Date: 20100115
  Serious: Yes (Other)
  Sender: FDA-Public Use
  Company Number: FR-ELI_LILLY_AND_COMPANY-FR200909004929

PATIENT
  Age: 62 Year
  Sex: Female

DRUGS (4)
  1. ZYPREXA [Suspect]
     Dosage: 10 MG, DAILY (1/D)
     Route: 048
  2. ANTIHYPERTENSIVES [Concomitant]
     Indication: HYPERTENSION
  3. ANTIDEPRESSANTS [Concomitant]
  4. ANXIOLYTICS [Concomitant]

REACTIONS (3)
  - INJURY [None]
  - PRESYNCOPE [None]
  - THYMUS DISORDER [None]
